FAERS Safety Report 12313316 (Version 1)
Quarter: 2016Q2

REPORT INFORMATION
  Report Type: Spontaneous
  Country: US (occurrence: US)
  Receive Date: 20160428
  Receipt Date: 20160428
  Transmission Date: 20160815
  Serious: No
  Sender: FDA-Public Use
  Company Number: US-PFIZER INC-2016200612

PATIENT
  Age: 71 Year
  Sex: Female

DRUGS (7)
  1. ALAVERT ALLERGY [Suspect]
     Active Substance: LORATADINE
     Indication: RHINORRHOEA
  2. ALAVERT ALLERGY [Suspect]
     Active Substance: LORATADINE
     Indication: LACRIMATION INCREASED
     Dosage: 10MG, DISINTEGRATING TABLET, ONCE A DAY
     Route: 048
     Dates: start: 2015
  3. ALAVERT ALLERGY [Suspect]
     Active Substance: LORATADINE
     Indication: DRUG REACTION WITH EOSINOPHILIA AND SYSTEMIC SYMPTOMS
  4. IBUPROFEN. [Suspect]
     Active Substance: IBUPROFEN
     Dosage: 1 DF, DAILY
     Route: 048
  5. LETROZOLE. [Suspect]
     Active Substance: LETROZOLE
     Indication: BREAST CANCER
     Dosage: 2.5 MG, DAILY
     Route: 048
     Dates: start: 2011
  6. ALAVERT ALLERGY [Suspect]
     Active Substance: LORATADINE
     Indication: EYE PRURITUS
  7. BENADRYL [Suspect]
     Active Substance: DIPHENHYDRAMINE HYDROCHLORIDE
     Dosage: UNK

REACTIONS (3)
  - Myalgia [Not Recovered/Not Resolved]
  - Condition aggravated [Not Recovered/Not Resolved]
  - Drug ineffective [Unknown]
